FAERS Safety Report 19889771 (Version 2)
Quarter: 2021Q4

REPORT INFORMATION
  Report Type: Other
  Country: ZA (occurrence: ZA)
  Receive Date: 20210927
  Receipt Date: 20211001
  Transmission Date: 20220303
  Serious: Yes (Hospitalization, Other)
  Sender: FDA-Public Use
  Company Number: ZA-ROCHE-2620313

PATIENT
  Age: 55 Year
  Sex: Female

DRUGS (2)
  1. MABTHERA [Suspect]
     Active Substance: RITUXIMAB
     Indication: Rheumatoid arthritis
     Dosage: INFUSED ON DAY 1 AND DAY 15
     Route: 042
     Dates: start: 20200115
  2. CORTISONE [Concomitant]
     Active Substance: CORTISONE

REACTIONS (6)
  - C-reactive protein increased [Unknown]
  - COVID-19 [Recovered/Resolved]
  - Rheumatoid arthritis [Recovered/Resolved]
  - C-reactive protein increased [Unknown]
  - Rheumatoid arthritis [Unknown]
  - Platelet count increased [Unknown]

NARRATIVE: CASE EVENT DATE: 20210714
